FAERS Safety Report 23691635 (Version 1)
Quarter: 2024Q2

REPORT INFORMATION
  Report Type: Spontaneous
  Country: CN (occurrence: CN)
  Receive Date: 20240401
  Receipt Date: 20240401
  Transmission Date: 20240716
  Serious: Yes (Hospitalization)
  Sender: FDA-Public Use
  Company Number: CN-STERISCIENCE B.V.-2024-ST-000352

PATIENT
  Age: 26 Year
  Sex: Male

DRUGS (19)
  1. VANCOMYCIN [Suspect]
     Active Substance: VANCOMYCIN
     Indication: Helicobacter infection
     Dosage: UNK
     Route: 065
  2. VANCOMYCIN [Suspect]
     Active Substance: VANCOMYCIN
     Dosage: UNK
     Route: 065
  3. VANCOMYCIN [Suspect]
     Active Substance: VANCOMYCIN
     Dosage: UNK
     Route: 065
  4. CEFMETAZOLE [Suspect]
     Active Substance: CEFMETAZOLE
     Indication: Helicobacter infection
     Dosage: UNK
     Route: 065
  5. CEFMETAZOLE [Suspect]
     Active Substance: CEFMETAZOLE
     Indication: Evidence based treatment
  6. LEVOFLOXACIN [Suspect]
     Active Substance: LEVOFLOXACIN
     Indication: Helicobacter infection
     Dosage: UNK
     Route: 065
  7. CEFTAZIDIME [Suspect]
     Active Substance: CEFTAZIDIME
     Indication: Helicobacter infection
     Dosage: FOR TWO WEEKS
     Route: 065
  8. CEFTAZIDIME [Suspect]
     Active Substance: CEFTAZIDIME
     Route: 065
  9. CEFACLOR [Concomitant]
     Active Substance: CEFACLOR
     Indication: Helicobacter infection
     Dosage: UNK
     Route: 065
  10. CEFOPERAZONE\SULBACTAM [Concomitant]
     Active Substance: CEFOPERAZONE\SULBACTAM
     Indication: Helicobacter infection
     Dosage: UNK
     Route: 065
  11. MOXIFLOXACIN [Concomitant]
     Active Substance: MOXIFLOXACIN
     Indication: Helicobacter infection
     Dosage: UNK
     Route: 065
  12. MOXIFLOXACIN [Concomitant]
     Active Substance: MOXIFLOXACIN
  13. Immunoglobulin [Concomitant]
     Indication: Hypogammaglobulinaemia
     Dosage: 600 MILLIGRAM/KILOGRAM
     Route: 042
  14. Immunoglobulin [Concomitant]
     Dosage: 20 GRAM
     Route: 042
  15. COTRIMOXAZOLE [Concomitant]
     Active Substance: SULFAMETHOXAZOLE\TRIMETHOPRIM
     Indication: Helicobacter infection
     Dosage: UNK
     Route: 065
  16. LINEZOLID [Concomitant]
     Active Substance: LINEZOLID
     Indication: Helicobacter infection
  17. MEROPENEM [Concomitant]
     Active Substance: MEROPENEM
     Indication: Helicobacter infection
     Dosage: UNK
     Route: 065
  18. CEFEPIME [Concomitant]
     Active Substance: CEFEPIME HYDROCHLORIDE
     Indication: Helicobacter infection
     Dosage: UNK
     Route: 065
  19. AMOXICILLIN\CLAVULANIC ACID [Concomitant]
     Active Substance: AMOXICILLIN\CLAVULANIC ACID
     Indication: Helicobacter infection
     Dosage: UNK
     Route: 065

REACTIONS (1)
  - Drug ineffective for unapproved indication [Unknown]
